FAERS Safety Report 16352913 (Version 2)
Quarter: 2019Q3

REPORT INFORMATION
  Report Type: Spontaneous
  Country: US (occurrence: US)
  Receive Date: 20190524
  Receipt Date: 20190701
  Transmission Date: 20191004
  Serious: No
  Sender: FDA-Public Use
  Company Number: US-PFIZER INC-2018358607

PATIENT
  Age: 55 Year
  Sex: Female

DRUGS (1)
  1. XELJANZ [Suspect]
     Active Substance: TOFACITINIB CITRATE
     Indication: ALOPECIA AREATA
     Dosage: 5 MG, 2X/DAY
     Route: 048

REACTIONS (5)
  - Stress [Unknown]
  - Perioral dermatitis [Unknown]
  - Product use in unapproved indication [Unknown]
  - Pruritus [Unknown]
  - Off label use [Unknown]
